FAERS Safety Report 4598823-1 (Version None)
Quarter: 2005Q1

REPORT INFORMATION
  Report Type: 
  Country: None (occurrence: None)
  Receive Date: 20050302
  Receipt Date: 20050216
  Transmission Date: 20050727
  Serious: Yes (Hospitalization)
  Sender: FDA-Public Use
  Company Number: MEDI-0002837

PATIENT
  Age: 3 Month
  Sex: Male
  Weight: 2.7216 kg

DRUGS (6)
  1. SYNAGIS [Suspect]
     Indication: ANTIVIRAL PROPHYLAXIS
     Dosage: SEE IMAGE
     Route: 030
     Dates: start: 20050103, end: 20050202
  2. SYNAGIS [Suspect]
     Indication: ANTIVIRAL PROPHYLAXIS
     Dosage: SEE IMAGE
     Route: 030
     Dates: start: 20050103
  3. TAGAMET [Concomitant]
  4. REGLAN [Concomitant]
  5. IRON                                              (IRON) [Concomitant]
  6. VITAMINS [Concomitant]

REACTIONS (6)
  - APNOEA [None]
  - BRONCHOSPASM [None]
  - CYANOSIS [None]
  - FEELING COLD [None]
  - FLUID INTAKE REDUCED [None]
  - NASOPHARYNGITIS [None]
